FAERS Safety Report 13232639 (Version 1)
Quarter: 2017Q1

REPORT INFORMATION
  Report Type: Report from Study
  Country: BR (occurrence: BR)
  Receive Date: 20170214
  Receipt Date: 20170214
  Transmission Date: 20170428
  Serious: Yes (Death)
  Sender: FDA-Public Use
  Company Number: PHHY2017BR021221

PATIENT
  Sex: Female
  Weight: 100 kg

DRUGS (1)
  1. FORASEQ [Suspect]
     Active Substance: BUDESONIDE\FORMOTEROL FUMARATE
     Indication: LUNG DISORDER
     Dosage: 1 DF (12/400 MCG), BID
     Route: 065

REACTIONS (3)
  - Pneumonia [Fatal]
  - Heart injury [Fatal]
  - Product use issue [Unknown]
